APPROVED DRUG PRODUCT: OXACILLIN SODIUM
Active Ingredient: OXACILLIN SODIUM
Strength: EQ 1GM BASE/VIAL
Dosage Form/Route: INJECTABLE;INJECTION
Application: A091486 | Product #001
Applicant: ONESOURCE SPECIALTY PTE LTD
Approved: Aug 25, 2014 | RLD: No | RS: No | Type: DISCN